FAERS Safety Report 18735731 (Version 33)
Quarter: 2024Q2

REPORT INFORMATION
  Report Type: Spontaneous
  Country: IL (occurrence: IL)
  Receive Date: 20210113
  Receipt Date: 20240531
  Transmission Date: 20240715
  Serious: Yes (Hospitalization, Other)
  Sender: FDA-Public Use
  Company Number: IL-PFIZER INC-2019022408

PATIENT
  Age: 69 Year
  Sex: Female

DRUGS (16)
  1. ELELYSO [Suspect]
     Active Substance: TALIGLUCERASE ALFA
     Indication: Gaucher^s disease
     Dosage: 1000 IU, FOR INFUSION, TREATMENT DURATION: ABOUT AN HOUR AND A HALF
     Route: 042
  2. ELELYSO [Suspect]
     Active Substance: TALIGLUCERASE ALFA
     Dosage: 1200 UNITS PER INFUSION TWICE A MONTH
     Route: 042
  3. ELELYSO [Suspect]
     Active Substance: TALIGLUCERASE ALFA
     Dosage: 5/6 VIALS TWICE A MONTH
     Route: 042
  4. ELELYSO [Suspect]
     Active Substance: TALIGLUCERASE ALFA
     Dosage: 5  VIALS
     Route: 042
  5. ELELYSO [Suspect]
     Active Substance: TALIGLUCERASE ALFA
     Dosage: 6 VIALS
     Route: 042
  6. ELELYSO [Suspect]
     Active Substance: TALIGLUCERASE ALFA
     Dosage: 6 VIALS
     Route: 042
     Dates: start: 20230214
  7. ELELYSO [Suspect]
     Active Substance: TALIGLUCERASE ALFA
     Dosage: 5 VIALS
     Route: 042
     Dates: start: 20230306
  8. ELELYSO [Suspect]
     Active Substance: TALIGLUCERASE ALFA
     Dosage: 6 VIALS
     Route: 042
     Dates: start: 20230306
  9. ELELYSO [Suspect]
     Active Substance: TALIGLUCERASE ALFA
     Dosage: 5 VIALS
     Route: 042
     Dates: start: 20230605, end: 20230605
  10. ELELYSO [Suspect]
     Active Substance: TALIGLUCERASE ALFA
     Dosage: 5 VIALS
     Route: 042
     Dates: start: 20230801, end: 20230801
  11. ELELYSO [Suspect]
     Active Substance: TALIGLUCERASE ALFA
     Dosage: 6 VIALS
     Route: 042
     Dates: start: 20230821, end: 20230821
  12. ELELYSO [Suspect]
     Active Substance: TALIGLUCERASE ALFA
     Dosage: 200 IU, 5 VIALS
     Route: 042
  13. ELELYSO [Suspect]
     Active Substance: TALIGLUCERASE ALFA
     Dosage: 1200 IU, TWICE A MONTH
     Route: 042
  14. ELELYSO [Suspect]
     Active Substance: TALIGLUCERASE ALFA
     Dosage: 6 VIALS
     Route: 042
     Dates: start: 20240416, end: 20240416
  15. ELELYSO [Suspect]
     Active Substance: TALIGLUCERASE ALFA
     Dosage: 5 VIALS
     Route: 042
  16. ELELYSO [Suspect]
     Active Substance: TALIGLUCERASE ALFA
     Dosage: 6 VIALS
     Route: 042
     Dates: start: 20240528, end: 20240528

REACTIONS (7)
  - Fall [Unknown]
  - Hip fracture [Not Recovered/Not Resolved]
  - Chest pain [Unknown]
  - Depressed mood [Unknown]
  - Post procedural complication [Unknown]
  - Chest discomfort [Unknown]
  - Inappropriate schedule of product administration [Unknown]
